FAERS Safety Report 6578985-7 (Version None)
Quarter: 2010Q1

REPORT INFORMATION
  Report Type: 
  Country: None (occurrence: None)
  Receive Date: 20100212
  Receipt Date: 20100201
  Transmission Date: 20100710
  Serious: Yes (Hospitalization)
  Sender: FDA-Public Use
  Company Number: DE-WYE-H08394109

PATIENT
  Age: 86 Year
  Sex: Female
  Weight: 47.5 kg

DRUGS (5)
  1. PANTOZOL [Suspect]
     Indication: DYSPEPSIA
     Route: 048
     Dates: end: 20080814
  2. FALITHROM [Concomitant]
     Indication: TACHYARRHYTHMIA
     Route: 048
  3. DIGITOXIN [Suspect]
     Indication: TACHYARRHYTHMIA
     Route: 048
     Dates: start: 20020101
  4. METOPROLOL SUCCINATE [Suspect]
     Indication: TACHYCARDIA
     Route: 048
     Dates: start: 20020101
  5. CIPRAMIL [Suspect]
     Indication: DEPRESSION
     Route: 048

REACTIONS (2)
  - FALSE POSITIVE LABORATORY RESULT [None]
  - THROMBOCYTOPENIA [None]
